FAERS Safety Report 16336727 (Version 1)
Quarter: 2019Q2

REPORT INFORMATION
  Report Type: Spontaneous
  Country: GB (occurrence: GB)
  Receive Date: 20190521
  Receipt Date: 20190521
  Transmission Date: 20190711
  Serious: Yes (Other)
  Sender: FDA-Public Use
  Company Number: GB-ASTELLAS-2019US020571

PATIENT
  Age: 69 Year
  Sex: Female

DRUGS (6)
  1. IRON [Concomitant]
     Active Substance: IRON
     Indication: PRODUCT USED FOR UNKNOWN INDICATION
     Dosage: UNK UNK, UNKNOWN FREQ.
     Route: 065
  2. VITAMIN D                          /00107901/ [Concomitant]
     Active Substance: ERGOCALCIFEROL
     Indication: PRODUCT USED FOR UNKNOWN INDICATION
     Dosage: UNK UNK, UNKNOWN FREQ.
     Route: 065
  3. VESICARE [Suspect]
     Active Substance: SOLIFENACIN SUCCINATE
     Indication: PRODUCT USED FOR UNKNOWN INDICATION
     Dosage: 10 MG, ONCE DAILY (IN THE MORNING)
     Route: 048
  4. VESICARE [Suspect]
     Active Substance: SOLIFENACIN SUCCINATE
     Dosage: 15 MG (10 MG + 5 MG), AT BEDTIME (AT NIGHT)
     Route: 048
  5. TRAMADOL. [Concomitant]
     Active Substance: TRAMADOL
     Indication: PRODUCT USED FOR UNKNOWN INDICATION
     Dosage: UNK UNK, TWICE DAILY (ONCE IN MORNING, ONCE AT NIGHT)
     Route: 065
  6. INDOMETHACIN                       /00003801/ [Concomitant]
     Active Substance: INDOMETHACIN
     Indication: PRODUCT USED FOR UNKNOWN INDICATION
     Dosage: UNK UNK, TWICE DAILY (ONCE IN MORNING, ONCE AT NIGHT)
     Route: 065

REACTIONS (8)
  - Pain in extremity [Unknown]
  - Overdose [Unknown]
  - Joint injury [Unknown]
  - Arthralgia [Unknown]
  - Polyuria [Not Recovered/Not Resolved]
  - Fall [Unknown]
  - Therapeutic product effect incomplete [Unknown]
  - Paraesthesia [Unknown]

NARRATIVE: CASE EVENT DATE: 201811
